FAERS Safety Report 7582388-6 (Version None)
Quarter: 2011Q2

REPORT INFORMATION
  Report Type: 
  Country: None (occurrence: None)
  Receive Date: 20110630
  Receipt Date: 20110621
  Transmission Date: 20111010
  Serious: Yes (Other)
  Sender: FDA-Public Use
  Company Number: CA-JNJFOC-20110610817

PATIENT

DRUGS (3)
  1. INFLIXIMAB, RECOMBINANT [Suspect]
     Indication: COLITIS ULCERATIVE
     Route: 042
  2. INFLIXIMAB, RECOMBINANT [Suspect]
     Route: 042
  3. CORTICOSTEROIDS [Concomitant]
     Indication: PREMEDICATION

REACTIONS (4)
  - PALPITATIONS [None]
  - CHEST DISCOMFORT [None]
  - RASH [None]
  - INFUSION RELATED REACTION [None]
